FAERS Safety Report 12269848 (Version 3)
Quarter: 2016Q3

REPORT INFORMATION
  Report Type: Spontaneous
  Country: US (occurrence: US)
  Receive Date: 20160415
  Receipt Date: 20160714
  Transmission Date: 20161109
  Serious: Yes (Hospitalization, Other)
  Sender: FDA-Public Use
  Company Number: US-BRISTOL-MYERS SQUIBB COMPANY-BMS-2016-026442

PATIENT
  Age: 60 Year
  Sex: Female

DRUGS (1)
  1. OPDIVO [Suspect]
     Active Substance: NIVOLUMAB
     Indication: ENDOMETRIAL CANCER
     Dosage: 231 MG, Q2WK
     Route: 042
     Dates: start: 20150825

REACTIONS (3)
  - Hypothyroidism [Unknown]
  - Adrenal insufficiency [Unknown]
  - Off label use [Unknown]

NARRATIVE: CASE EVENT DATE: 20160226
